FAERS Safety Report 8449202 (Version 4)
Quarter: 2013Q2

REPORT INFORMATION
  Report Type: Report from Study
  Country: MX (occurrence: MX)
  Receive Date: 20120308
  Receipt Date: 20130419
  Transmission Date: 20140414
  Serious: Yes (Death, Hospitalization)
  Sender: FDA-Public Use
  Company Number: PHHY2012MX019569

PATIENT
  Age: 80 Year
  Sex: Female

DRUGS (4)
  1. ACLASTA [Suspect]
     Indication: OSTEOPOROSIS
     Dosage: 5 MG / 100 ML
     Dates: start: 2009
  2. ACLASTA [Suspect]
     Dosage: 5 MG/100 ML
     Route: 042
  3. ACLASTA [Suspect]
     Dosage: 5 MG/100 ML
     Route: 042
     Dates: start: 201111
  4. ACLASTA [Suspect]
     Dosage: 5 MG/100 ML
     Route: 042
     Dates: start: 201202

REACTIONS (7)
  - Acute pulmonary oedema [Fatal]
  - Chronic obstructive pulmonary disease [Fatal]
  - Spinal column injury [Recovered/Resolved]
  - Arthralgia [Recovering/Resolving]
  - Musculoskeletal chest pain [Recovered/Resolved]
  - Back pain [Recovered/Resolved]
  - Inappropriate schedule of drug administration [Unknown]
